FAERS Safety Report 18761376 (Version 1)
Quarter: 2021Q1

REPORT INFORMATION
  Report Type: Other
  Country: US (occurrence: US)
  Receive Date: 20210119
  Receipt Date: 20210119
  Transmission Date: 20210419
  Serious: No
  Sender: FDA-Public Use
  Company Number: US-ROCHE-2751035

PATIENT
  Age: 53 Year
  Sex: Male

DRUGS (4)
  1. DIAZEPAM. [Concomitant]
     Active Substance: DIAZEPAM
     Dosage: TAKE 1 TABLET BY MOUTH AT BEDTIME AS NEEDED FOR SLEEP
     Route: 048
  2. OCREVUS [Suspect]
     Active Substance: OCRELIZUMAB
     Indication: RELAPSING-REMITTING MULTIPLE SCLEROSIS
     Dosage: INFUSE 600MG INTRAVENOUSLY EVERY 6 MONTH(S)
     Route: 065
  3. SIMVASTATIN. [Concomitant]
     Active Substance: SIMVASTATIN
     Dosage: STARTED ABOUT 4 YEARS AGO UNKNOWN DOSAGE
     Route: 048
  4. OCREVUS [Suspect]
     Active Substance: OCRELIZUMAB
     Indication: MULTIPLE SCLEROSIS
     Dosage: STARTED JAN?2019 OR DEC?2018, UNKNOWN DOSAGE
     Route: 042

REACTIONS (2)
  - COVID-19 [Recovered/Resolved]
  - Insomnia [Recovered/Resolved]

NARRATIVE: CASE EVENT DATE: 202010
